FAERS Safety Report 9248219 (Version 2)
Quarter: 2013Q3

REPORT INFORMATION
  Report Type: Spontaneous
  Country: US (occurrence: US)
  Receive Date: 20130423
  Receipt Date: 20130813
  Transmission Date: 20140515
  Serious: No
  Sender: FDA-Public Use
  Company Number: US-ASTRAZENECA-2013SE27384

PATIENT
  Age: 37 Year
  Sex: Female

DRUGS (10)
  1. NEXIUM [Suspect]
     Indication: GASTROOESOPHAGEAL REFLUX DISEASE
     Route: 048
     Dates: start: 2001
  2. NEXIUM [Suspect]
     Indication: GASTROOESOPHAGEAL REFLUX DISEASE
     Route: 048
     Dates: start: 20020531
  3. TUMS [Concomitant]
     Indication: DYSPEPSIA
     Dosage: AS NEEDED
  4. TUMS [Concomitant]
     Indication: DYSPEPSIA
     Dosage: AS NEEDED
  5. TYLENOL [Concomitant]
  6. LEXAPRO [Concomitant]
  7. SYNTHROID [Concomitant]
  8. EFFEXOR XR [Concomitant]
     Dosage: ONCE A DAY
     Dates: start: 20040126
  9. BACTRIM [Concomitant]
     Dates: start: 20031031
  10. NEURONTIN [Concomitant]
     Dates: start: 20040126

REACTIONS (8)
  - Osteoporosis [Unknown]
  - Bone disorder [Unknown]
  - Diabetes mellitus [Unknown]
  - Exostosis [Unknown]
  - Hand fracture [Unknown]
  - Hypothyroidism [Unknown]
  - Osteochondrosis [Unknown]
  - Panic attack [Unknown]
